FAERS Safety Report 19656963 (Version 1)
Quarter: 2021Q3

REPORT INFORMATION
  Report Type: Spontaneous
  Country: PL (occurrence: PL)
  Receive Date: 20210804
  Receipt Date: 20210804
  Transmission Date: 20211014
  Serious: Yes (Hospitalization, Other)
  Sender: FDA-Public Use
  Company Number: PL-MYLANLABS-2021M1047736

PATIENT
  Age: 53 Year
  Sex: Male

DRUGS (14)
  1. PIPERACILLIN AND TAZOBACTAM [Suspect]
     Active Substance: PIPERACILLIN SODIUM\TAZOBACTAM SODIUM
     Indication: ANTIBIOTIC THERAPY
     Dosage: UNK
     Route: 065
  2. ITRACONAZOLE. [Concomitant]
     Active Substance: ITRACONAZOLE
     Indication: PNEUMONIA FUNGAL
     Dosage: UNK
     Route: 065
  3. VANCOMYCIN MYLAN [Suspect]
     Active Substance: VANCOMYCIN
     Indication: ANTIBIOTIC THERAPY
     Dosage: UNK
     Route: 065
  4. DAUNORUBICIN [Suspect]
     Active Substance: DAUNORUBICIN
     Indication: CHEMOTHERAPY
     Dosage: UNK
     Route: 065
  5. POSACONAZOLE [Concomitant]
     Active Substance: POSACONAZOLE
     Indication: ANTIFUNGAL TREATMENT
     Dosage: 200 MILLIGRAM, QD, DAILY
  6. CYTOSINE ARABINOSIDE [Suspect]
     Active Substance: CYTARABINE
     Dosage: UNK, COMBINATION WITH DAUNORUBICIN
     Route: 065
  7. MICAFUNGIN. [Concomitant]
     Active Substance: MICAFUNGIN SODIUM
     Indication: PNEUMONIA FUNGAL
     Dosage: UNK
     Route: 065
  8. MEROPENEM. [Suspect]
     Active Substance: MEROPENEM
     Indication: ANTIBIOTIC THERAPY
     Dosage: UNK, IN COMBINATION WITH AMIKACIN
     Route: 065
  9. AMIKACIN. [Suspect]
     Active Substance: AMIKACIN
     Indication: ANTIBIOTIC THERAPY
     Dosage: UNK
     Route: 065
  10. VORICONAZOLE MYLAN [Suspect]
     Active Substance: VORICONAZOLE
     Indication: ANTIFUNGAL TREATMENT
     Dosage: UNK
     Route: 065
  11. MITOXANTRONE [Suspect]
     Active Substance: MITOXANTRONE HYDROCHLORIDE
     Indication: CHEMOTHERAPY
     Dosage: UNK
     Route: 065
     Dates: start: 201512
  12. AMBISOME [Suspect]
     Active Substance: AMPHOTERICIN B
     Indication: ANTIFUNGAL TREATMENT
     Dosage: LIPID FORM
     Route: 065
  13. CYTOSINE ARABINOSIDE [Suspect]
     Active Substance: CYTARABINE
     Indication: CHEMOTHERAPY
     Dosage: UNK, COMBINATION WITH HIGH DOSES OF MITOXANTRONE
     Route: 065
  14. CASPOFUNGIN [Concomitant]
     Active Substance: CASPOFUNGIN
     Indication: PNEUMONIA FUNGAL
     Dosage: UNK
     Route: 065

REACTIONS (5)
  - Drug ineffective [Unknown]
  - Fungal infection [Unknown]
  - Staphylococcal infection [Unknown]
  - Myelosuppression [Unknown]
  - Lower respiratory tract infection [Recovering/Resolving]
